FAERS Safety Report 8829185 (Version 5)
Quarter: 2013Q4

REPORT INFORMATION
  Report Type: Report from Study
  Country: US (occurrence: US)
  Receive Date: 20121008
  Receipt Date: 20131015
  Transmission Date: 20140711
  Serious: Yes (Other)
  Sender: FDA-Public Use
  Company Number: PHEH2012US013951

PATIENT
  Age: 46 Year
  Sex: Female

DRUGS (10)
  1. EXTAVIA [Suspect]
     Indication: MULTIPLE SCLEROSIS
     Dosage: 0.25 MG, QOD
     Route: 058
     Dates: start: 201206
  2. EXTAVIA [Suspect]
     Dosage: 0.0625 MG, QOD
     Route: 058
     Dates: start: 20120706
  3. EXTAVIA [Suspect]
     Dosage: 0.25 MG, QOD
     Route: 058
     Dates: start: 201207
  4. KLONOPIN [Concomitant]
     Dosage: 0.5 MG, UNK
  5. VITAMIN D [Concomitant]
  6. CYMBALTA [Concomitant]
     Dosage: 60 MG, UNK
  7. B COMPLEX [Concomitant]
  8. MULTIVITAMINS [Concomitant]
  9. VICODIN [Concomitant]
     Dosage: UNK UKN, UNK
  10. STEROIDS [Concomitant]
     Dosage: UNK UKN, UNK
     Route: 042

REACTIONS (24)
  - Optic neuritis [Not Recovered/Not Resolved]
  - Visual impairment [Not Recovered/Not Resolved]
  - Central nervous system lesion [Not Recovered/Not Resolved]
  - Restless legs syndrome [Not Recovered/Not Resolved]
  - Cognitive disorder [Not Recovered/Not Resolved]
  - Gait disturbance [Not Recovered/Not Resolved]
  - General physical health deterioration [Not Recovered/Not Resolved]
  - Enzyme level increased [Recovering/Resolving]
  - Tinnitus [Recovered/Resolved]
  - Muscle spasticity [Recovering/Resolving]
  - Musculoskeletal pain [Not Recovered/Not Resolved]
  - Pain in extremity [Not Recovered/Not Resolved]
  - Constipation [Not Recovered/Not Resolved]
  - Muscle spasms [Recovering/Resolving]
  - Arthralgia [Not Recovered/Not Resolved]
  - Hypoaesthesia [Recovered/Resolved]
  - Dizziness [Not Recovered/Not Resolved]
  - Fatigue [Not Recovered/Not Resolved]
  - Pain [Recovering/Resolving]
  - Headache [Not Recovered/Not Resolved]
  - Injection site bruising [Not Recovered/Not Resolved]
  - Injection site erythema [Recovering/Resolving]
  - Injection site haemorrhage [Recovering/Resolving]
  - Injection site pain [Recovering/Resolving]
